FAERS Safety Report 8131051-1 (Version None)
Quarter: 2012Q1

REPORT INFORMATION
  Report Type: 
  Country: None (occurrence: None)
  Receive Date: 20120209
  Receipt Date: 20120209
  Transmission Date: 20120608
  Serious: No
  Sender: FDA-Public Use
  Company Number: None

PATIENT
  Sex: Male
  Weight: 81 kg

DRUGS (3)
  1. RITUXIMAB (MOAB C2B8 ANTI CD20, CHIMERIC) [Suspect]
     Dosage: 990 MG
     Dates: end: 20110718
  2. FLUDARABINE PHOSPHATE [Suspect]
     Dosage: 60 MG
     Dates: end: 20110720
  3. CYCLOPHOSPHAMIDE [Suspect]
     Dosage: 540 MG
     Dates: end: 20110720

REACTIONS (2)
  - BASAL CELL CARCINOMA [None]
  - SQUAMOUS CELL CARCINOMA OF SKIN [None]
